FAERS Safety Report 5244207-2 (Version None)
Quarter: 2007Q1

REPORT INFORMATION
  Report Type: 
  Country: None (occurrence: None)
  Receive Date: 20070222
  Receipt Date: 20070214
  Transmission Date: 20070707
  Serious: Yes (Death, Other)
  Sender: FDA-Public Use
  Company Number: GB-2007003355

PATIENT
  Age: 63 Year
  Sex: Male

DRUGS (9)
  1. BUSULPHAN [Suspect]
     Indication: ALLOGENIC BONE MARROW TRANSPLANTATION THERAPY
     Route: 065
  2. CAMPATH [Suspect]
     Indication: ALLOGENIC BONE MARROW TRANSPLANTATION THERAPY
     Route: 065
  3. CYCLOSPORINE [Suspect]
     Indication: GRAFT VERSUS HOST DISEASE
     Route: 065
  4. FLUDARABINE [Suspect]
     Route: 065
  5. CYTARABINE [Concomitant]
  6. NEUPOGEN [Concomitant]
  7. IDARUBICIN HCL [Concomitant]
  8. SULFAMETHOXAZOLE [Concomitant]
  9. TRIMETOPRIM [Concomitant]

REACTIONS (3)
  - ACUTE GRAFT VERSUS HOST DISEASE IN SKIN [None]
  - CEREBRAL TOXOPLASMOSIS [None]
  - LEUKAEMIA RECURRENT [None]
